FAERS Safety Report 14564810 (Version 1)
Quarter: 2018Q1

REPORT INFORMATION
  Report Type: Spontaneous
  Country: US (occurrence: US)
  Receive Date: 20180223
  Receipt Date: 20180223
  Transmission Date: 20180509
  Serious: No
  Sender: FDA-Public Use
  Company Number: US-009507513-1802USA006049

PATIENT
  Sex: Male

DRUGS (3)
  1. SYLATRON [Suspect]
     Active Substance: PEGINTERFERON ALFA-2B
     Indication: MALIGNANT MELANOMA
     Dosage: 200 MICROGRAM, QW
     Route: 058
     Dates: start: 20160728
  2. VITAMINS (UNSPECIFIED) [Concomitant]
     Active Substance: VITAMINS
  3. NICOLIN [Concomitant]

REACTIONS (3)
  - Memory impairment [Unknown]
  - Decreased activity [Unknown]
  - Pruritus [Unknown]
